FAERS Safety Report 18884915 (Version 1)
Quarter: 2021Q1

REPORT INFORMATION
  Report Type: Spontaneous
  Country: US (occurrence: US)
  Receive Date: 20210212
  Receipt Date: 20210212
  Transmission Date: 20210420
  Serious: Yes (Life-Threatening, Disabling, Other)
  Sender: FDA-Public Use
  Company Number: None

PATIENT
  Age: 19 Year
  Weight: 55.79 kg

DRUGS (1)
  1. ESCITALOPRAM [Suspect]
     Active Substance: ESCITALOPRAM OXALATE

REACTIONS (6)
  - Weight decreased [None]
  - Depression [None]
  - Withdrawal syndrome [None]
  - Violence-related symptom [None]
  - Paranoia [None]
  - Confusional state [None]

NARRATIVE: CASE EVENT DATE: 20200201
